FAERS Safety Report 6686493-8 (Version None)
Quarter: 2010Q2

REPORT INFORMATION
  Report Type: 
  Country: None (occurrence: None)
  Receive Date: 20100419
  Receipt Date: 20100409
  Transmission Date: 20101027
  Serious: Yes (Other)
  Sender: FDA-Public Use
  Company Number: US-ROCHE-689991

PATIENT
  Sex: Male

DRUGS (3)
  1. PEGASYS [Suspect]
     Indication: HEPATITIS C
     Dosage: FORM: PREFILLED SYRINGE
     Route: 065
     Dates: start: 20100122
  2. RIBAVIRIN [Suspect]
     Indication: HEPATITIS C
     Route: 065
     Dates: start: 20100122
  3. RIBAVIRIN [Suspect]
     Route: 065
     Dates: start: 20100226

REACTIONS (7)
  - ANAEMIA [None]
  - ANXIETY [None]
  - DECREASED APPETITE [None]
  - FATIGUE [None]
  - INSOMNIA [None]
  - SPINAL COLUMN INJURY [None]
  - WEIGHT DECREASED [None]
